FAERS Safety Report 5162022-5 (Version None)
Quarter: 2006Q4

REPORT INFORMATION
  Report Type: 
  Country: None (occurrence: None)
  Receive Date: 20061121
  Receipt Date: 20061009
  Transmission Date: 20070319
  Serious: Yes (Other)
  Sender: FDA-Public Use
  Company Number: 2006BH013753

PATIENT
  Age: 42 Year
  Sex: Male
  Weight: 81.5 kg

DRUGS (7)
  1. EXTRANEAL [Suspect]
     Indication: PERITONEAL DIALYSIS
     Dosage: 2000 MG; EVERY DAY; IP
     Route: 033
     Dates: start: 20060620, end: 20061002
  2. DESAL [Concomitant]
  3. PHOS-EX [Concomitant]
  4. FOLBIOL [Concomitant]
  5. RILACE PLUS [Concomitant]
  6. ONE-ALPHA [Concomitant]
  7. DIANEAL [Concomitant]

REACTIONS (5)
  - ABDOMINAL PAIN UPPER [None]
  - DIARRHOEA [None]
  - NAUSEA [None]
  - PYREXIA [None]
  - VOMITING [None]
